FAERS Safety Report 5514912-9 (Version None)
Quarter: 2007Q4

REPORT INFORMATION
  Report Type: 
  Country: None (occurrence: None)
  Receive Date: 20071113
  Receipt Date: 20060929
  Transmission Date: 20080405
  Serious: No
  Sender: FDA-Public Use
  Company Number: A0621941A

PATIENT
  Age: 64 Year
  Sex: Male

DRUGS (4)
  1. COREG [Suspect]
     Dosage: 6.25MG TWICE PER DAY
     Route: 048
     Dates: start: 20060901, end: 20060923
  2. LIPITOR [Suspect]
     Indication: DRUG USE FOR UNKNOWN INDICATION
     Route: 065
     Dates: start: 20050412
  3. CENTRUM [Concomitant]
  4. ASPIRIN [Concomitant]

REACTIONS (8)
  - CHILLS [None]
  - DECREASED APPETITE [None]
  - DIARRHOEA [None]
  - DYSURIA [None]
  - HOT FLUSH [None]
  - HYPERSOMNIA [None]
  - HYPOTENSION [None]
  - PAIN [None]
